FAERS Safety Report 7597297-6 (Version None)
Quarter: 2011Q3

REPORT INFORMATION
  Report Type: 
  Country: None (occurrence: None)
  Receive Date: 20110708
  Receipt Date: 20110330
  Transmission Date: 20111222
  Serious: No
  Sender: FDA-Public Use
  Company Number: US-GLAXOSMITHKLINE-A0920717A

PATIENT
  Age: 6 Year
  Sex: Male

DRUGS (2)
  1. FLOVENT [Suspect]
     Indication: ASTHMA
     Dosage: 1PUFF TWICE PER DAY
     Route: 055
     Dates: start: 20100301
  2. NO CONCURRENT MEDICATION [Concomitant]

REACTIONS (6)
  - RED BLOOD CELL SEDIMENTATION RATE INCREASED [None]
  - PHARYNGEAL ERYTHEMA [None]
  - LABORATORY TEST ABNORMAL [None]
  - WHITE BLOOD CELL COUNT INCREASED [None]
  - INFECTION [None]
  - THROAT IRRITATION [None]
